FAERS Safety Report 13251889 (Version 2)
Quarter: 2017Q1

REPORT INFORMATION
  Report Type: Spontaneous
  Country: JP (occurrence: JP)
  Receive Date: 20170220
  Receipt Date: 20170307
  Transmission Date: 20170428
  Serious: Yes (Hospitalization)
  Sender: FDA-Public Use
  Company Number: JP-GE HEALTHCARE LIFE SCIENCES-OMPQ-PR-1701S-0202

PATIENT

DRUGS (6)
  1. NORVASC [Concomitant]
     Active Substance: AMLODIPINE BESYLATE
  2. FEBURIC [Concomitant]
     Active Substance: FEBUXOSTAT
  3. DIOVAN [Concomitant]
     Active Substance: VALSARTAN
  4. OMNIPAQUE [Suspect]
     Active Substance: IOHEXOL
     Indication: PRODUCT USED FOR UNKNOWN INDICATION
     Dosage: 100 ML, SINGLE
     Route: 042
     Dates: start: 20170120, end: 20170120
  5. SELOKEN [Concomitant]
     Active Substance: METOPROLOL
  6. URINORM                            /00227201/ [Concomitant]
     Active Substance: BENZBROMARONE

REACTIONS (6)
  - Loss of consciousness [Recovered/Resolved]
  - Feeling abnormal [Recovered/Resolved]
  - Oropharyngeal pain [Unknown]
  - Back pain [Unknown]
  - Fall [Recovered/Resolved]
  - Subarachnoid haemorrhage [Recovered/Resolved]

NARRATIVE: CASE EVENT DATE: 20170120
